FAERS Safety Report 23511391 (Version 3)
Quarter: 2024Q1

REPORT INFORMATION
  Report Type: Spontaneous
  Country: US (occurrence: US)
  Receive Date: 20240212
  Receipt Date: 20240221
  Transmission Date: 20240410
  Serious: Yes (Other)
  Sender: FDA-Public Use
  Company Number: US-AMGEN-USASP2024027000

PATIENT
  Age: 42 Year
  Sex: Female

DRUGS (2)
  1. REPATHA [Suspect]
     Active Substance: EVOLOCUMAB
     Indication: Blood cholesterol increased
     Dosage: 420 MILLIGRAM, QMO
     Route: 065
     Dates: start: 202310
  2. REPATHA [Suspect]
     Active Substance: EVOLOCUMAB
     Dosage: UNK
     Route: 065

REACTIONS (7)
  - Gastrointestinal disorder [Not Recovered/Not Resolved]
  - Drug dose omission by device [Unknown]
  - Wrong technique in product usage process [Unknown]
  - Burning sensation [Unknown]
  - Visual impairment [Unknown]
  - Product preparation error [Unknown]
  - Device use error [Unknown]

NARRATIVE: CASE EVENT DATE: 20240202
